FAERS Safety Report 19602974 (Version 1)
Quarter: 2021Q3

REPORT INFORMATION
  Report Type: Spontaneous
  Country: DE (occurrence: DE)
  Receive Date: 20210723
  Receipt Date: 20210723
  Transmission Date: 20211014
  Serious: Yes (Hospitalization)
  Sender: FDA-Public Use
  Company Number: DE-MYLANLABS-2021M1044292

PATIENT
  Age: 49 Year
  Sex: Female

DRUGS (2)
  1. GLATIRAMER [Suspect]
     Active Substance: GLATIRAMER
     Indication: RELAPSING-REMITTING MULTIPLE SCLEROSIS
     Dosage: 40 MILLIGRAM 40MG THREE TIMES PER WEEK.
     Route: 065
  2. GLATIRAMER [Suspect]
     Active Substance: GLATIRAMER
     Dosage: RE?EXPOSED TO GLATIRAMER ACETATE 40MG
     Route: 065

REACTIONS (1)
  - Meningitis aseptic [Recovered/Resolved]
